FAERS Safety Report 18424352 (Version 10)
Quarter: 2021Q3

REPORT INFORMATION
  Report Type: Report from Study
  Country: TR (occurrence: TR)
  Receive Date: 20201026
  Receipt Date: 20210809
  Transmission Date: 20211014
  Serious: Yes (Hospitalization, Other)
  Sender: FDA-Public Use
  Company Number: TR-ROCHE-2677440

PATIENT
  Age: 36 Year
  Sex: Male
  Weight: 104.6 kg

DRUGS (26)
  1. MOKSILOX [Concomitant]
     Route: 042
     Dates: start: 20201211, end: 20201217
  2. ATEZOLIZUMAB. [Suspect]
     Active Substance: ATEZOLIZUMAB
     Indication: NON-SMALL CELL LUNG CANCER
     Dosage: DATE OF MOST RECENT DOSE OF ATEZOLIZUMAB PRIOR TO AE ONSET: 20/AUG/2020?ON 26/NOV/2020, AT 12:10 REC
     Route: 041
     Dates: start: 20170718
  3. PREDNOL?L [Concomitant]
     Route: 048
     Dates: start: 20210130, end: 20210203
  4. PREDNOL?L [Concomitant]
     Route: 048
     Dates: start: 20210221, end: 20210225
  5. ZALDIAR [Concomitant]
     Active Substance: ACETAMINOPHEN\TRAMADOL HYDROCHLORIDE
     Dates: start: 20200820
  6. PREDNOL?L [Concomitant]
     Route: 048
     Dates: start: 20210203, end: 20210207
  7. METHYLPREDNISOLONE. [Concomitant]
     Active Substance: METHYLPREDNISOLONE
     Route: 048
     Dates: start: 20201223, end: 20201227
  8. PARACEROL [Concomitant]
     Indication: PNEUMONIA
     Route: 042
     Dates: start: 20201211, end: 20201217
  9. PREDNOL?L [Concomitant]
     Route: 048
     Dates: start: 20210207, end: 20210209
  10. PREDNOL?L [Concomitant]
     Route: 048
     Dates: start: 20210211, end: 20210215
  11. PHENIRAMINE [Concomitant]
     Active Substance: PHENIRAMINE
     Route: 042
     Dates: start: 20201211, end: 20201217
  12. ZYGOSIS [Concomitant]
     Indication: PNEUMONIA
     Route: 042
     Dates: start: 20201211, end: 20201217
  13. PANTOPRAZOLE [Concomitant]
     Active Substance: PANTOPRAZOLE
     Indication: PROPHYLAXIS
     Dates: start: 20171222
  14. PREDNOL?L [Concomitant]
     Route: 048
     Dates: start: 20210226, end: 20210307
  15. PREDNOL?L [Concomitant]
     Route: 048
     Dates: start: 20201228, end: 20210101
  16. AVELOX [Concomitant]
     Active Substance: MOXIFLOXACIN HYDROCHLORIDE
     Indication: PNEUMONIA
     Route: 042
     Dates: start: 20201217, end: 20201224
  17. CLEXANE [Concomitant]
     Active Substance: ENOXAPARIN SODIUM
     Indication: PULMONARY EMBOLISM
     Dosage: 10 MG/ML
     Route: 042
     Dates: start: 20200611
  18. AERIUS [Concomitant]
     Indication: RASH MACULO-PAPULAR
     Dates: start: 20200724, end: 20201023
  19. NOVOSEF [Concomitant]
     Indication: PNEUMONIA
     Dates: start: 20201211, end: 20201214
  20. PREDNOL?L [Concomitant]
     Indication: PULMONARY EMBOLISM
     Route: 048
     Dates: start: 20210126, end: 20210130
  21. ZYRTEC (TURKEY) [Concomitant]
     Indication: RASH MACULO-PAPULAR
     Dates: start: 20201023, end: 20201126
  22. AVELOX [Concomitant]
     Active Substance: MOXIFLOXACIN HYDROCHLORIDE
     Route: 042
     Dates: start: 20201211, end: 20201217
  23. PREDNOL?L [Concomitant]
     Route: 048
     Dates: start: 20210209, end: 20210210
  24. PREDNOL?L [Concomitant]
     Route: 048
     Dates: start: 20210216, end: 20210220
  25. PREDNOL?L [Concomitant]
     Route: 048
     Dates: start: 20201218, end: 20201222
  26. AVIL [Concomitant]
     Active Substance: PHENIRAMINE
     Indication: RASH MACULO-PAPULAR
     Dates: start: 20201126

REACTIONS (3)
  - Dyspnoea [Recovered/Resolved]
  - Langerhans^ cell histiocytosis [Recovered/Resolved]
  - Pneumonia [Recovered/Resolved]

NARRATIVE: CASE EVENT DATE: 20200911
